FAERS Safety Report 4714432-5 (Version None)
Quarter: 2005Q3

REPORT INFORMATION
  Report Type: 
  Country: None (occurrence: None)
  Receive Date: 20050714
  Receipt Date: 20050518
  Transmission Date: 20060218
  Serious: Yes (Other)
  Sender: FDA-Public Use
  Company Number: US-BRISTOL-MYERS SQUIBB COMPANY-12973228

PATIENT
  Age: 90 Year
  Sex: Female
  Weight: 56 kg

DRUGS (8)
  1. ERBITUX [Suspect]
     Indication: COLON CANCER
     Dosage: REC'D 250 MG/M2 NOV 2004
     Route: 042
  2. CPT-11 [Concomitant]
  3. BENADRYL [Concomitant]
     Indication: PREMEDICATION
     Route: 042
  4. POTASSIUM CHLORIDE [Concomitant]
  5. PRINIVIL [Concomitant]
  6. CALCIUM GLUCONATE [Concomitant]
  7. ALLOPURINOL [Concomitant]
  8. MAGNESIUM [Concomitant]

REACTIONS (2)
  - BACTERIA STOOL IDENTIFIED [None]
  - DIARRHOEA [None]
